FAERS Safety Report 6312691-9 (Version None)
Quarter: 2009Q3

REPORT INFORMATION
  Report Type: 
  Country: None (occurrence: None)
  Receive Date: 20090814
  Receipt Date: 20090814
  Transmission Date: 20100115
  Serious: Yes (Other)
  Sender: FDA-Public Use
  Company Number: None

PATIENT
  Sex: Female

DRUGS (1)
  1. DIVALPROEX SODIUM [Suspect]
     Dosage: 500 MG ONCE QHS ORAL
     Route: 048
     Dates: start: 20090727, end: 20090806

REACTIONS (6)
  - AGGRESSION [None]
  - ANXIETY [None]
  - DEPRESSED MOOD [None]
  - DEPRESSION [None]
  - PRODUCT SUBSTITUTION ISSUE [None]
  - STRESS [None]
